FAERS Safety Report 9081784 (Version 1)
Quarter: 2013Q1

REPORT INFORMATION
  Report Type: Spontaneous
  Country: IT (occurrence: IT)
  Receive Date: 20130130
  Receipt Date: 20130130
  Transmission Date: 20140127
  Serious: Yes (Hospitalization)
  Sender: FDA-Public Use
  Company Number: PHHY2013IT007568

PATIENT
  Age: 81 Year
  Sex: Female

DRUGS (4)
  1. METHOTREXATE [Suspect]
     Indication: RHEUMATOID ARTHRITIS
     Dosage: 7.5 MG, WEEKLY
     Route: 030
     Dates: start: 19900101, end: 20120606
  2. ORENCIA [Suspect]
     Indication: RHEUMATOID ARTHRITIS
     Dosage: 750 MG, CYCLIC
     Route: 042
     Dates: start: 20110801, end: 20121206
  3. ESOPRAL [Concomitant]
  4. DEFLAN [Concomitant]

REACTIONS (1)
  - Bursitis [Unknown]
